FAERS Safety Report 11351878 (Version 1)
Quarter: 2015Q3

REPORT INFORMATION
  Report Type: Spontaneous
  Country: US (occurrence: US)
  Receive Date: 20150807
  Receipt Date: 20150807
  Transmission Date: 20151125
  Serious: No
  Sender: FDA-Public Use
  Company Number: US-JNJFOC-20141119131

PATIENT
  Age: 2 Year
  Sex: Female

DRUGS (2)
  1. PEPCID COMPLETE [Suspect]
     Active Substance: CALCIUM CARBONATE\FAMOTIDINE\MAGNESIUM HYDROXIDE
     Route: 048
  2. PEPCID COMPLETE [Suspect]
     Active Substance: CALCIUM CARBONATE\FAMOTIDINE\MAGNESIUM HYDROXIDE
     Indication: ACCIDENTAL EXPOSURE TO PRODUCT
     Dosage: 1-4 CHEWABLE TABLETS
     Route: 048
     Dates: start: 20141123, end: 20141123

REACTIONS (1)
  - Accidental exposure to product by child [Unknown]

NARRATIVE: CASE EVENT DATE: 20141123
